FAERS Safety Report 8916631 (Version 2)
Quarter: 2014Q3

REPORT INFORMATION
  Report Type: Spontaneous
  Country: FR (occurrence: FR)
  Receive Date: 20121120
  Receipt Date: 20140807
  Transmission Date: 20150326
  Serious: Yes (Life-Threatening, Hospitalization)
  Sender: FDA-Public Use
  Company Number: FR-ASTRAZENECA-2012SE87458

PATIENT
  Age: 20046 Day
  Sex: Male

DRUGS (7)
  1. BRILIQUE [Suspect]
     Active Substance: TICAGRELOR
     Indication: ACUTE CORONARY SYNDROME
     Route: 048
     Dates: start: 201211, end: 20121113
  2. INIPOMP [Concomitant]
     Active Substance: PANTOPRAZOLE SODIUM
     Route: 048
     Dates: start: 201211
  3. TAHOR [Concomitant]
     Active Substance: ATORVASTATIN CALCIUM
     Route: 048
     Dates: start: 201211
  4. COVERSYL [Concomitant]
     Active Substance: PERINDOPRIL
     Indication: ACUTE CORONARY SYNDROME
     Route: 048
     Dates: start: 201211
  5. KARDEGIC [Concomitant]
     Active Substance: ASPIRIN LYSINE
     Indication: ACUTE CORONARY SYNDROME
     Route: 048
     Dates: start: 201211
  6. CARDENSIEL [Concomitant]
     Active Substance: BISOPROLOL FUMARATE
     Indication: ACUTE CORONARY SYNDROME
     Route: 048
     Dates: start: 201211
  7. ALDACTONE [Concomitant]
     Active Substance: SPIRONOLACTONE
     Indication: ACUTE CORONARY SYNDROME
     Route: 048
     Dates: start: 201211

REACTIONS (3)
  - Thrombosis in device [Recovered/Resolved]
  - Drug dose omission [Recovered/Resolved]
  - Myocardial infarction [Recovered/Resolved]

NARRATIVE: CASE EVENT DATE: 20121113
